FAERS Safety Report 5004851-4 (Version None)
Quarter: 2006Q2

REPORT INFORMATION
  Report Type: 
  Country: None (occurrence: None)
  Receive Date: 20060517
  Receipt Date: 20050412
  Transmission Date: 20061013
  Serious: Yes (Hospitalization)
  Sender: FDA-Public Use
  Company Number: US-MERCK-0504USA02219

PATIENT
  Age: 79 Year
  Sex: Female
  Weight: 81 kg

DRUGS (1)
  1. VIOXX [Suspect]
     Indication: ARTHRITIS
     Route: 048
     Dates: start: 20010109, end: 20030701

REACTIONS (8)
  - ABDOMINAL PAIN [None]
  - BREAST DISORDER [None]
  - CEREBROVASCULAR ACCIDENT [None]
  - CHEST PAIN [None]
  - ISCHAEMIC STROKE [None]
  - NAUSEA [None]
  - PRESCRIBED OVERDOSE [None]
  - VOMITING [None]
